FAERS Safety Report 9013525 (Version 1)
Quarter: 2013Q1

REPORT INFORMATION
  Report Type: Spontaneous
  Country: US (occurrence: US)
  Receive Date: 20130115
  Receipt Date: 20130115
  Transmission Date: 20140127
  Serious: Yes (Hospitalization)
  Sender: FDA-Public Use
  Company Number: US-BAYER-2013-003890

PATIENT
  Age: 42 Year
  Sex: Female
  Weight: 96.6 kg

DRUGS (5)
  1. YAZ [Suspect]
  2. YASMIN [Suspect]
  3. SARAFEM [Concomitant]
     Dosage: 20 MG, DAILY
  4. AMBIEN CR [Concomitant]
     Dosage: 6.25 MG, UNK
  5. ALBUTEROL [Concomitant]
     Route: 045

REACTIONS (2)
  - Deep vein thrombosis [None]
  - Pulmonary embolism [None]
